FAERS Safety Report 6138466-1 (Version None)
Quarter: 2009Q1

REPORT INFORMATION
  Report Type: 
  Country: None (occurrence: None)
  Receive Date: 20090327
  Receipt Date: 20090327
  Transmission Date: 20090719
  Serious: No
  Sender: FDA-Public Use
  Company Number: None

PATIENT
  Age: 54 Year
  Sex: Female

DRUGS (1)
  1. CISPLATIN [Suspect]
     Indication: ANAL CANCER
     Dosage: 180 MG EVERY DAY IV
     Route: 042
     Dates: start: 20090318, end: 20090319

REACTIONS (5)
  - ALBUMINURIA [None]
  - GLYCOSURIA [None]
  - NEPHROPATHY TOXIC [None]
  - RENAL FAILURE ACUTE [None]
  - RENAL TUBULAR NECROSIS [None]
